FAERS Safety Report 5599989-7 (Version None)
Quarter: 2008Q1

REPORT INFORMATION
  Report Type: 
  Country: None (occurrence: None)
  Receive Date: 20080118
  Receipt Date: 20080103
  Transmission Date: 20080703
  Serious: Yes (Hospitalization, Disabling)
  Sender: FDA-Public Use
  Company Number: ALK_00345_2007

PATIENT
  Sex: Female
  Weight: 98.4306 kg

DRUGS (2)
  1. VIVITROL [Suspect]
     Indication: ALCOHOL ABUSE
     Dosage: (380 MG 1X/MONTH)
     Dates: start: 20070717
  2. NEXIUM [Concomitant]

REACTIONS (8)
  - CULTURE WOUND POSITIVE [None]
  - ENTEROBACTER INFECTION [None]
  - INJECTION SITE ABSCESS [None]
  - INJECTION SITE INFECTION [None]
  - INJECTION SITE NECROSIS [None]
  - NO THERAPEUTIC RESPONSE [None]
  - SCAR [None]
  - WOUND INFECTION PSEUDOMONAS [None]
